FAERS Safety Report 9757924 (Version 1)
Quarter: 2013Q4

REPORT INFORMATION
  Report Type: Report from Study
  Country: JP (occurrence: JP)
  Receive Date: 20131216
  Receipt Date: 20131216
  Transmission Date: 20140711
  Serious: No
  Sender: FDA-Public Use
  Company Number: JP-JNJFOC-20131201565

PATIENT
  Age: 51 Year
  Sex: Male
  Weight: 74 kg

DRUGS (8)
  1. STELARA [Suspect]
     Indication: PSORIASIS
     Route: 058
     Dates: start: 20121210, end: 20121210
  2. STELARA [Suspect]
     Indication: PSORIASIS
     Route: 058
     Dates: start: 20130304, end: 20130304
  3. STELARA [Suspect]
     Indication: PSORIASIS
     Route: 058
     Dates: start: 20130527
  4. STELARA [Suspect]
     Indication: PSORIASIS
     Route: 058
     Dates: start: 20120919, end: 20120919
  5. STELARA [Suspect]
     Indication: PSORIASIS
     Route: 058
     Dates: start: 20120629, end: 20120629
  6. STELARA [Suspect]
     Indication: PSORIASIS
     Route: 058
     Dates: start: 20120604, end: 20120604
  7. ZYLORIC [Concomitant]
     Indication: HYPERTENSION
     Route: 048
     Dates: start: 20130527
  8. RINDERON-V [Concomitant]
     Indication: PSORIASIS
     Route: 061
     Dates: start: 20130527

REACTIONS (1)
  - Blood bilirubin increased [Recovered/Resolved]
